FAERS Safety Report 25220065 (Version 1)
Quarter: 2025Q2

REPORT INFORMATION
  Report Type: Other
  Country: CA (occurrence: CA)
  Receive Date: 20250421
  Receipt Date: 20250421
  Transmission Date: 20250717
  Serious: Yes (Hospitalization)
  Sender: PFIZER
  Company Number: CA-PFIZER INC-202500082384

PATIENT
  Age: 11 Year
  Sex: Female

DRUGS (15)
  1. BACTERIOSTATIC SODIUM CHLORIDE [Suspect]
     Active Substance: SODIUM CHLORIDE
     Indication: Neurogenic bowel
     Route: 065
  2. BACTERIOSTATIC SODIUM CHLORIDE [Suspect]
     Active Substance: SODIUM CHLORIDE
     Indication: Constipation
  3. BACTERIOSTATIC SODIUM CHLORIDE [Suspect]
     Active Substance: SODIUM CHLORIDE
     Indication: Anal incontinence
  4. BACTERIOSTATIC SODIUM CHLORIDE [Suspect]
     Active Substance: SODIUM CHLORIDE
     Indication: Neurogenic bowel
  5. BACTERIOSTATIC SODIUM CHLORIDE [Suspect]
     Active Substance: SODIUM CHLORIDE
     Indication: Constipation
  6. BACTERIOSTATIC SODIUM CHLORIDE [Suspect]
     Active Substance: SODIUM CHLORIDE
     Indication: Anal incontinence
  7. BISACODYL [Suspect]
     Active Substance: BISACODYL
     Indication: Neurogenic bowel
     Route: 065
  8. BISACODYL [Suspect]
     Active Substance: BISACODYL
     Indication: Constipation
  9. BISACODYL [Suspect]
     Active Substance: BISACODYL
     Indication: Anal incontinence
  10. GLYCERIN [Suspect]
     Active Substance: GLYCERIN
     Indication: Neurogenic bowel
     Route: 065
  11. GLYCERIN [Suspect]
     Active Substance: GLYCERIN
     Indication: Constipation
  12. GLYCERIN [Suspect]
     Active Substance: GLYCERIN
     Indication: Anal incontinence
  13. PEG 3350 [Suspect]
     Active Substance: POLYETHYLENE GLYCOL 3350
     Indication: Neurogenic bowel
     Route: 065
  14. PEG 3350 [Suspect]
     Active Substance: POLYETHYLENE GLYCOL 3350
     Indication: Constipation
  15. PEG 3350 [Suspect]
     Active Substance: POLYETHYLENE GLYCOL 3350
     Indication: Anal incontinence

REACTIONS (4)
  - Abdominal distension [Recovered/Resolved]
  - Abdominal pain [Recovered/Resolved]
  - Vomiting [Recovered/Resolved]
  - Off label use [Unknown]
